FAERS Safety Report 5084461-3 (Version None)
Quarter: 2006Q3

REPORT INFORMATION
  Report Type: 
  Country: None (occurrence: None)
  Receive Date: 20060815
  Receipt Date: 20060802
  Transmission Date: 20061208
  Serious: Yes (Hospitalization, Other)
  Sender: FDA-Public Use
  Company Number: MC200600188

PATIENT
  Age: 67 Year

DRUGS (12)
  1. BIVALIRUDIN (BIVALIRUDIN) INJECTION [Suspect]
     Dosage: 75 + 175 MG, BOLUS, IV BOLUS - SEE IMAGE
     Dates: start: 20060110, end: 20060110
  2. BIVALIRUDIN (BIVALIRUDIN) INJECTION [Suspect]
     Dosage: 75 + 175 MG, BOLUS, IV BOLUS - SEE IMAGE
     Dates: start: 20060110, end: 20060110
  3. ASPIRIN [Concomitant]
  4. PLAVIX [Concomitant]
  5. PLAVIX [Concomitant]
  6. CARDURA [Concomitant]
  7. INSULIN [Concomitant]
  8. LOPRESSOR [Concomitant]
  9. NORVASC [Concomitant]
  10. ZOCOR [Concomitant]
  11. HYDROCHLOROTHIAZIDE [Concomitant]
  12. RAMIPRIL [Concomitant]

REACTIONS (14)
  - ANGINA UNSTABLE [None]
  - ASTHENIA [None]
  - BACTERIA URINE [None]
  - BLOOD URINE [None]
  - DIABETIC COMPLICATION [None]
  - DIABETIC NEUROPATHY [None]
  - ELECTROCARDIOGRAM ST SEGMENT ELEVATION [None]
  - FALL [None]
  - FATIGUE [None]
  - HAEMATOCRIT DECREASED [None]
  - HAEMOGLOBIN DECREASED [None]
  - PROTHROMBIN TIME PROLONGED [None]
  - RENAL FAILURE CHRONIC [None]
  - VIRAL INFECTION [None]
